FAERS Safety Report 7007098-5 (Version None)
Quarter: 2010Q3

REPORT INFORMATION
  Report Type: 
  Country: None (occurrence: None)
  Receive Date: 20100920
  Receipt Date: 20100913
  Transmission Date: 20110219
  Serious: Yes (Hospitalization)
  Sender: FDA-Public Use
  Company Number: DSA_43639_2010

PATIENT
  Sex: Female

DRUGS (5)
  1. XENAZINE [Suspect]
     Indication: TARDIVE DYSKINESIA
     Dosage: DF ORAL, 25 MG QID ORAL
     Route: 048
     Dates: start: 20080101
  2. XENAZINE [Suspect]
     Indication: TARDIVE DYSKINESIA
     Dosage: DF ORAL, 25 MG QID ORAL
     Route: 048
     Dates: start: 20100503
  3. CELEXA /00552602/ [Concomitant]
  4. METFORMIN [Concomitant]
  5. WARFARIN SODIUM [Concomitant]

REACTIONS (7)
  - ANXIETY [None]
  - DEPRESSION [None]
  - DYSKINESIA [None]
  - GAIT DISTURBANCE [None]
  - PANIC ATTACK [None]
  - PANIC DISORDER [None]
  - PSYCHOTIC DISORDER [None]
